FAERS Safety Report 9094437 (Version 1)
Quarter: 2013Q1

REPORT INFORMATION
  Report Type: Spontaneous
  Country: US (occurrence: US)
  Receive Date: 20130219
  Receipt Date: 20130219
  Transmission Date: 20140127
  Serious: No
  Sender: FDA-Public Use
  Company Number: US-009507513-1302USA007004

PATIENT
  Sex: 0

DRUGS (3)
  1. JANUVIA [Suspect]
  2. METFORMIN [Concomitant]
  3. GLIPIZIDE [Concomitant]

REACTIONS (3)
  - Frequent bowel movements [Unknown]
  - Pollakiuria [Unknown]
  - Headache [Unknown]
